FAERS Safety Report 21631698 (Version 1)
Quarter: 2022Q4

REPORT INFORMATION
  Report Type: Report from Study
  Country: US (occurrence: US)
  Receive Date: 20221123
  Receipt Date: 20221123
  Transmission Date: 20230112
  Serious: No
  Sender: FDA-Public Use
  Company Number: US-ABBVIE-22K-163-4454374-00

PATIENT
  Sex: Female

DRUGS (3)
  1. SKYRIZI [Suspect]
     Active Substance: RISANKIZUMAB-RZAA
     Indication: Psoriasis
     Dosage: WEEK 0?FIRST ADMIN DATE 15 APR 2022?LAST ADMIN DATE 15 APR 2022?FORM STRENGTH 150MG
     Route: 058
  2. SKYRIZI [Suspect]
     Active Substance: RISANKIZUMAB-RZAA
     Dosage: WEEK 4?FIRST ADMIN DATE MAY 2022?LAST ADMIN DATE MAY 2022?FORM STRENGTH 150MG
     Route: 058
     Dates: start: 202205, end: 202205
  3. SKYRIZI [Suspect]
     Active Substance: RISANKIZUMAB-RZAA
     Dosage: FIRST ADMIN DATE JUL 2022?FORM STRENGTH 150MG
     Route: 058
     Dates: start: 202207

REACTIONS (5)
  - Pain [Unknown]
  - Erythema [Unknown]
  - Pruritus [Unknown]
  - Condition aggravated [Unknown]
  - Burning sensation [Unknown]

NARRATIVE: CASE EVENT DATE: 20220101
